FAERS Safety Report 9372349 (Version 2)
Quarter: 2013Q4

REPORT INFORMATION
  Report Type: Spontaneous
  Country: DE (occurrence: DE)
  Receive Date: 20130627
  Receipt Date: 20131008
  Transmission Date: 20140711
  Serious: Yes (Other)
  Sender: FDA-Public Use
  Company Number: DE-UCBSA-089539

PATIENT
  Age: 70 Year
  Sex: Female

DRUGS (1)
  1. NEUPRO [Suspect]
     Indication: RESTLESS LEGS SYNDROME
     Route: 062
     Dates: start: 20121001, end: 20130604

REACTIONS (2)
  - Eczema [Recovered/Resolved]
  - Application site hypersensitivity [Recovering/Resolving]
